FAERS Safety Report 17554749 (Version 1)
Quarter: 2020Q1

REPORT INFORMATION
  Report Type: Spontaneous
  Country: GR (occurrence: GR)
  Receive Date: 20200318
  Receipt Date: 20200318
  Transmission Date: 20200409
  Serious: Yes (Other)
  Sender: FDA-Public Use
  Company Number: GR-ROCHE-2565862

PATIENT

DRUGS (1)
  1. HERCEPTIN [Suspect]
     Active Substance: TRASTUZUMAB
     Indication: BREAST CANCER
     Route: 065

REACTIONS (6)
  - Arrhythmia [Unknown]
  - Hypertension [Unknown]
  - Acute coronary syndrome [Unknown]
  - Cardiac failure [Unknown]
  - Embolism [Unknown]
  - Left ventricular dysfunction [Unknown]
